FAERS Safety Report 8786231 (Version 1)
Quarter: 2012Q4

REPORT INFORMATION
  Report Type: 
  Country: FR (occurrence: FR)
  Receive Date: 20120914
  Receipt Date: 20120914
  Transmission Date: 20130627
  Serious: Yes (Other)
  Sender: FDA-Public Use
  Company Number: FR-PFIZER INC-2012224730

PATIENT
  Sex: Male

DRUGS (1)
  1. TAHOR [Suspect]
     Dosage: 10 mg, 1x/day
     Dates: end: 20120910

REACTIONS (4)
  - Blood creatinine increased [Unknown]
  - Blood cholesterol increased [Unknown]
  - Headache [Unknown]
  - Fatigue [Unknown]
